FAERS Safety Report 8573274-3 (Version None)
Quarter: 2012Q3

REPORT INFORMATION
  Report Type: 
  Country: None (occurrence: None)
  Receive Date: 20120806
  Receipt Date: 20120723
  Transmission Date: 20120928
  Serious: Yes (Other)
  Sender: FDA-Public Use
  Company Number: JP-PFIZER INC-2012175892

PATIENT
  Age: 92 Year
  Sex: Female

DRUGS (8)
  1. TICLOPIDINE HCL [Suspect]
     Dosage: 300 MG, DAILY
     Route: 048
     Dates: end: 20120718
  2. GLAKAY [Concomitant]
     Dosage: UNK
  3. LIPITOR [Suspect]
     Indication: HYPERLIPIDAEMIA
     Dosage: 10 MG, 1X/DAY
     Route: 048
  4. CALCIUM LACTATE [Concomitant]
     Dosage: UNK
  5. ACTONEL [Concomitant]
     Dosage: UNK
  6. MAGMITT [Concomitant]
     Dosage: UNK
  7. CANDESARTAN CILEXETIL [Concomitant]
     Dosage: UNK
  8. CONIEL [Concomitant]
     Dosage: UNK

REACTIONS (1)
  - BLOOD CREATININE INCREASED [None]
